FAERS Safety Report 4284316-8 (Version None)
Quarter: 2004Q1

REPORT INFORMATION
  Report Type: 
  Country: None (occurrence: None)
  Receive Date: 20040130
  Receipt Date: 20040107
  Transmission Date: 20041129
  Serious: Yes (Other)
  Sender: FDA-Public Use
  Company Number: DE_031212675

PATIENT
  Age: 69 Year
  Sex: Female
  Weight: 51 kg

DRUGS (3)
  1. EVISTA [Suspect]
     Indication: OSTEOPOROSIS
     Dosage: 60 MG/DAY
     Dates: start: 20030312, end: 20030101
  2. CALCIUM [Concomitant]
  3. VITAMIN D [Concomitant]

REACTIONS (1)
  - LIVER FUNCTION TEST ABNORMAL [None]
